FAERS Safety Report 6436821-3 (Version None)
Quarter: 2009Q4

REPORT INFORMATION
  Report Type: 
  Country: None (occurrence: None)
  Receive Date: 20091111
  Receipt Date: 20091106
  Transmission Date: 20100525
  Serious: Yes (Disabling)
  Sender: FDA-Public Use
  Company Number: CO-MERCK-0911COL00004

PATIENT
  Age: 40 Year
  Sex: Male

DRUGS (3)
  1. ISENTRESS [Suspect]
     Indication: HIV INFECTION
     Route: 048
  2. DARUNAVIR [Concomitant]
     Indication: HIV INFECTION
     Route: 065
  3. ETRAVIRINE [Concomitant]
     Route: 065

REACTIONS (2)
  - BLOOD CREATINE PHOSPHOKINASE INCREASED [None]
  - WEIGHT DECREASED [None]
